FAERS Safety Report 23371688 (Version 1)
Quarter: 2024Q1

REPORT INFORMATION
  Report Type: Spontaneous
  Country: US (occurrence: US)
  Receive Date: 20240105
  Receipt Date: 20240105
  Transmission Date: 20240409
  Serious: No
  Sender: FDA-Public Use
  Company Number: US-BRISTOL-MYERS SQUIBB COMPANY-2024-002865

PATIENT
  Age: 88 Year
  Sex: Female
  Weight: 63.96 kg

DRUGS (1)
  1. LENALIDOMIDE [Suspect]
     Active Substance: LENALIDOMIDE
     Indication: Myelodysplastic syndrome
     Dosage: FREQUENCY: 1 CAPSULE EVERY 2 DAYS FOR 21 DAYS ON THEN 7 DAYS OFF OUT OF A 28-DAY CYCLE
     Route: 048
     Dates: start: 20220310

REACTIONS (2)
  - White blood cell count decreased [Not Recovered/Not Resolved]
  - Off label use [Unknown]
